FAERS Safety Report 4519274-1 (Version None)
Quarter: 2004Q4

REPORT INFORMATION
  Report Type: 
  Country: None (occurrence: None)
  Receive Date: 20041206
  Receipt Date: 20041124
  Transmission Date: 20050328
  Serious: Yes (Life-Threatening)
  Sender: FDA-Public Use
  Company Number: FR-BRISTOL-MYERS SQUIBB COMPANY-12774741

PATIENT
  Age: 73 Year
  Sex: Male
  Weight: 46 kg

DRUGS (11)
  1. AMIKLIN [Suspect]
     Indication: BACTERIAL CULTURE POSITIVE
     Dates: start: 20040801, end: 20040810
  2. FORTUM [Suspect]
     Indication: BACTERIAL CULTURE POSITIVE
     Dates: start: 20040801, end: 20040810
  3. ORELOX [Suspect]
     Indication: BACTERIAL CULTURE POSITIVE
     Route: 048
     Dates: start: 20040801, end: 20040814
  4. SOLUPRED [Concomitant]
     Dates: start: 20040811, end: 20040814
  5. CLAMOXYL [Concomitant]
  6. OMEPRAZOLE [Concomitant]
     Dates: start: 20040811, end: 20040814
  7. NASONEX [Concomitant]
  8. AMBROXOL HCL [Concomitant]
  9. AMLOR [Concomitant]
  10. ART 50 [Concomitant]
  11. TANAKAN [Concomitant]

REACTIONS (8)
  - COUGH [None]
  - HEPATIC FIBROSIS [None]
  - HEPATITIS [None]
  - HEPATITIS CHOLESTATIC [None]
  - HEPATOMEGALY [None]
  - INSOMNIA [None]
  - PYREXIA [None]
  - SPUTUM DISCOLOURED [None]
